FAERS Safety Report 17165670 (Version 4)
Quarter: 2020Q2

REPORT INFORMATION
  Report Type: Spontaneous
  Country: US (occurrence: US)
  Receive Date: 20191217
  Receipt Date: 20200430
  Transmission Date: 20200713
  Serious: Yes (Hospitalization, Other)
  Sender: FDA-Public Use
  Company Number: US-PFIZER INC-2019538300

PATIENT
  Age: 75 Year
  Sex: Female

DRUGS (9)
  1. ROMIPLOSTIM [Suspect]
     Active Substance: ROMIPLOSTIM
     Dosage: 3 DOSAGES WITH ONE DOSE AT 500 UG, ONCE
  2. GLIPIZIDE. [Suspect]
     Active Substance: GLIPIZIDE
     Dosage: UNK (TOOK FOR ONE WEEK)
  3. RITUXIMAB. [Suspect]
     Active Substance: RITUXIMAB
     Dosage: 3 DF (3 DOSES)
  4. WINRHO [Suspect]
     Active Substance: HUMAN RHO(D) IMMUNE GLOBULIN
     Indication: IMMUNE THROMBOCYTOPENIA
     Dosage: UNK
  5. SOLU-MEDROL [Suspect]
     Active Substance: METHYLPREDNISOLONE SODIUM SUCCINATE
     Dosage: UNK (HIGH DOSAGE)
     Route: 042
  6. PREDNISOLONE. [Suspect]
     Active Substance: PREDNISOLONE
     Dosage: 90 MG
  7. ROMIPLOSTIM [Suspect]
     Active Substance: ROMIPLOSTIM
     Dosage: 500 UG, SINGLE (1 DOSE)
  8. ROMIPLOSTIM [Suspect]
     Active Substance: ROMIPLOSTIM
     Dosage: 250 UG
  9. DEXAMETHASONE. [Suspect]
     Active Substance: DEXAMETHASONE
     Dosage: UNK

REACTIONS (9)
  - Condition aggravated [Recovered/Resolved]
  - Alopecia [Recovered/Resolved]
  - Abdominal pain upper [Unknown]
  - Diabetes mellitus [Unknown]
  - Anaemia [Unknown]
  - Dizziness [Unknown]
  - Weight increased [Unknown]
  - Immune thrombocytopenia [Recovered/Resolved]
  - Joint swelling [Recovered/Resolved]

NARRATIVE: CASE EVENT DATE: 2019
